FAERS Safety Report 7687086 (Version 3)
Quarter: 2014Q4

REPORT INFORMATION
  Report Type: Report from Study
  Country: NO (occurrence: NO)
  Receive Date: 20101130
  Receipt Date: 20141110
  Transmission Date: 20150529
  Serious: Yes (Hospitalization, Disabling, Other)
  Sender: FDA-Public Use
  Company Number: NO-ACTELION-A-CH2010-41735

PATIENT
  Age: 37 Year
  Sex: Female
  Weight: 62 kg

DRUGS (8)
  1. TRACLEER [Suspect]
     Active Substance: BOSENTAN\BOSENTAN MONOHYDRATE
     Dosage: 93.75 MG, BID
     Route: 048
     Dates: start: 20100712
  2. TRACLEER [Suspect]
     Active Substance: BOSENTAN\BOSENTAN MONOHYDRATE
     Indication: SKIN ULCER
     Dosage: 125 MG, BID
     Route: 048
     Dates: start: 20100101, end: 20100711
  3. ALBYL-E [Concomitant]
     Active Substance: ASPIRIN\MAGNESIUM OXIDE
     Indication: CEREBELLAR INFARCTION
     Dosage: UNK
     Dates: start: 20100501
  4. TRACLEER [Suspect]
     Active Substance: BOSENTAN\BOSENTAN MONOHYDRATE
     Dosage: 62.5 MG, BID
     Route: 048
     Dates: end: 20130427
  5. LEVAXIN [Concomitant]
     Active Substance: LEVOTHYROXINE SODIUM
     Indication: HYPOTHYROIDISM
     Dosage: UNK
     Dates: start: 2005
  6. PERSANTIN [Concomitant]
     Active Substance: DIPYRIDAMOLE
     Indication: CEREBELLAR INFARCTION
     Dosage: UNK
     Dates: start: 20100505
  7. TRACLEER [Suspect]
     Active Substance: BOSENTAN\BOSENTAN MONOHYDRATE
     Dosage: 93.75 MG, BID
     Route: 048
     Dates: start: 20130428, end: 20140211
  8. TRACLEER [Suspect]
     Active Substance: BOSENTAN\BOSENTAN MONOHYDRATE
     Dosage: 125 MG, OD
     Route: 048
     Dates: start: 20140212

REACTIONS (7)
  - Dizziness [Recovered/Resolved with Sequelae]
  - Memory impairment [Recovered/Resolved with Sequelae]
  - Disturbance in attention [Recovered/Resolved with Sequelae]
  - Alanine aminotransferase increased [Recovered/Resolved]
  - Cerebellar infarction [Recovered/Resolved with Sequelae]
  - Liver function test abnormal [Recovered/Resolved]
  - Headache [Recovered/Resolved]

NARRATIVE: CASE EVENT DATE: 201002
